FAERS Safety Report 16476683 (Version 1)
Quarter: 2019Q2

REPORT INFORMATION
  Report Type: Spontaneous
  Country: US (occurrence: US)
  Receive Date: 20190626
  Receipt Date: 20190626
  Transmission Date: 20190711
  Serious: No
  Sender: FDA-Public Use
  Company Number: US-TEVA-2019-US-1058208

PATIENT
  Sex: Male

DRUGS (1)
  1. CLONAZEPAM. [Suspect]
     Active Substance: CLONAZEPAM
     Indication: STRESS
     Route: 065

REACTIONS (3)
  - Hallucination [Unknown]
  - Withdrawal syndrome [Unknown]
  - Insomnia [Unknown]
